FAERS Safety Report 7438045-X (Version None)
Quarter: 2011Q2

REPORT INFORMATION
  Report Type: 
  Country: None (occurrence: None)
  Receive Date: 20110426
  Receipt Date: 20110418
  Transmission Date: 20111010
  Serious: Yes (Other)
  Sender: FDA-Public Use
  Company Number: PHHY2011US33237

PATIENT
  Age: 34 Year
  Sex: Male
  Weight: 147.39 kg

DRUGS (4)
  1. FANAPT [Suspect]
     Dosage: 24 MG, QD
  2. XANAX [Concomitant]
     Dosage: UNK UKN, AS NEEDED
  3. FANAPT [Suspect]
     Dosage: 12 MG, QD
  4. FANAPT [Suspect]
     Dosage: 36 MG, QD

REACTIONS (7)
  - OVERDOSE [None]
  - ABNORMAL BEHAVIOUR [None]
  - AGGRESSION [None]
  - HALLUCINATION [None]
  - THINKING ABNORMAL [None]
  - SUICIDAL IDEATION [None]
  - DRUG INEFFECTIVE [None]
